FAERS Safety Report 18038429 (Version 1)
Quarter: 2020Q3

REPORT INFORMATION
  Report Type: Spontaneous
  Country: GB (occurrence: GB)
  Receive Date: 20200717
  Receipt Date: 20200717
  Transmission Date: 20201103
  Serious: Yes (Life-Threatening)
  Sender: FDA-Public Use
  Company Number: GB-TEVA-2020-GB-1800786

PATIENT
  Age: 22 Year
  Sex: Female
  Weight: 54 kg

DRUGS (12)
  1. OMEPRAZOLE. [Suspect]
     Active Substance: OMEPRAZOLE
     Dosage: 20 MG
     Route: 048
     Dates: start: 20200619
  2. AMITRIPTYLINE HYDROCHLORIDE. [Concomitant]
     Active Substance: AMITRIPTYLINE HYDROCHLORIDE
     Dosage: 2 DOSAGE FORMS DAILY; EVERY NIGHT
     Dates: start: 20200228
  3. TRIMETHOPRIM. [Concomitant]
     Active Substance: TRIMETHOPRIM
     Indication: PROPHYLAXIS URINARY TRACT INFECTION
     Dosage: 1 DOSAGE FORMS DAILY; AT NIGHT  FOR 3 MONTHS
     Dates: start: 20200305
  4. OLOPATADINE. [Concomitant]
     Active Substance: OLOPATADINE
     Dosage: 2 GTT
     Dates: start: 20200311
  5. ACCRETE D3 [Concomitant]
     Active Substance: CALCIUM CARBONATE\CHOLECALCIFEROL
     Dosage: 1 DOSAGE FORM
     Dates: start: 20190116
  6. RANITIDINE. [Concomitant]
     Active Substance: RANITIDINE
     Dosage: 1 DOSAGE FORM
     Dates: start: 20200211
  7. NITROFURANTOIN. [Concomitant]
     Active Substance: NITROFURANTOIN
     Dosage: FOR 7 DAYS, 2 DOSAGE FORMS
     Dates: start: 20200518, end: 20200525
  8. EPIPEN [Concomitant]
     Active Substance: EPINEPHRINE
     Dosage: USE AS DIRECTED
     Dates: start: 20200228
  9. HYDROCORTISONE. [Concomitant]
     Active Substance: HYDROCORTISONE
     Dosage: (HALF A VIAL), 150 MG
     Dates: start: 20190312
  10. SALBUTAMOL [Concomitant]
     Active Substance: ALBUTEROL
     Dosage: UP TO FOUR TIMES A DAY, 2 DOSAGE FORMS
     Route: 055
     Dates: start: 20191007
  11. FEXOFENADINE [Concomitant]
     Active Substance: FEXOFENADINE HYDROCHLORIDE
     Dosage: 2 DOSAGE FORMS
     Dates: start: 20200311
  12. RESOLUTION CHEMICALS HYDVENTIA [Concomitant]
     Dosage: 1 IN THE MORNING, 1 AT MIDDAY AND 1 AT 5PM. PLE..., 3 DOSAGE FORMS
     Dates: start: 20200228

REACTIONS (4)
  - Mouth swelling [Unknown]
  - Swelling face [Unknown]
  - Swollen tongue [Recovered/Resolved]
  - Urticaria [Unknown]

NARRATIVE: CASE EVENT DATE: 20200622
